FAERS Safety Report 5766429-4 (Version None)
Quarter: 2008Q2

REPORT INFORMATION
  Report Type: 
  Country: None (occurrence: None)
  Receive Date: 20080611
  Receipt Date: 20080515
  Transmission Date: 20081010
  Serious: No
  Sender: FDA-Public Use
  Company Number: US-BOEHRINGER INGELHEIM GMBH, GERMANY-2008-BP-07643BP

PATIENT
  Age: 74 Year
  Sex: Male

DRUGS (14)
  1. SPIRIVA [Suspect]
     Indication: EMPHYSEMA
     Route: 055
     Dates: start: 20080101
  2. SPIRIVA [Suspect]
     Indication: HYPERSENSITIVITY
  3. COREG [Concomitant]
  4. TRANDOLAPRIL [Concomitant]
  5. HYDROCHLOROTHIAZIDE [Concomitant]
  6. GLIPIZIDE [Concomitant]
  7. ASPIRIN [Concomitant]
  8. SIMVASTATIN [Concomitant]
  9. DOXEPIN HCL [Concomitant]
  10. NITROGLYCERIN [Concomitant]
  11. PULMICORT [Concomitant]
  12. BUDESANIDE [Concomitant]
  13. IPRATROPIUM BROMIDE [Concomitant]
  14. ALBUTEROL [Concomitant]

REACTIONS (1)
  - THERAPEUTIC RESPONSE DECREASED [None]
